FAERS Safety Report 11655534 (Version 1)
Quarter: 2015Q4

REPORT INFORMATION
  Report Type: Spontaneous
  Country: JP (occurrence: JP)
  Receive Date: 20151023
  Receipt Date: 20151023
  Transmission Date: 20160304
  Serious: Yes (Other)
  Sender: FDA-Public Use
  Company Number: JP-GLAXOSMITHKLINE-JP2015JPN148767

PATIENT
  Sex: Female

DRUGS (1)
  1. LAMICTAL [Suspect]
     Active Substance: LAMOTRIGINE
     Dosage: 875 MG, 1D
     Route: 063

REACTIONS (3)
  - Apnoea [Recovered/Resolved]
  - Exposure during breast feeding [Unknown]
  - Cyanosis [Recovered/Resolved]
